FAERS Safety Report 21226560 (Version 1)
Quarter: 2022Q3

REPORT INFORMATION
  Report Type: Spontaneous
  Country: US (occurrence: US)
  Receive Date: 20220818
  Receipt Date: 20220818
  Transmission Date: 20221026
  Serious: No
  Sender: FDA-Public Use
  Company Number: US-ELI_LILLY_AND_COMPANY-US202208008195

PATIENT
  Age: 59 Year
  Sex: Male

DRUGS (3)
  1. GLUCAGON [Suspect]
     Active Substance: GLUCAGON
     Indication: Hypoglycaemia
     Dosage: 1 MG, UNKNOWN
     Route: 058
  2. HUMULIN N [Suspect]
     Active Substance: INSULIN HUMAN
     Indication: Type 1 diabetes mellitus
     Dosage: 20 MG, BID
     Route: 058
  3. HUMULIN R [Suspect]
     Active Substance: INSULIN HUMAN
     Indication: Type 1 diabetes mellitus
     Dosage: UNK UNK, PRN
     Route: 058

REACTIONS (2)
  - Hypoglycaemia [Recovered/Resolved]
  - Diabetes mellitus inadequate control [Unknown]
